FAERS Safety Report 16020678 (Version 2)
Quarter: 2019Q2

REPORT INFORMATION
  Report Type: Spontaneous
  Country: US (occurrence: US)
  Receive Date: 20190301
  Receipt Date: 20190614
  Transmission Date: 20190711
  Serious: No
  Sender: FDA-Public Use
  Company Number: US-JNJFOC-20190221210

PATIENT
  Sex: Male

DRUGS (8)
  1. ONDANSETRON [Concomitant]
     Active Substance: ONDANSETRON
  2. LORAZEPAM. [Concomitant]
     Active Substance: LORAZEPAM
  3. PROCHLORPERAZINE. [Concomitant]
     Active Substance: PROCHLORPERAZINE
  4. HYDROCODONE BITARTRATE. [Concomitant]
     Active Substance: HYDROCODONE BITARTRATE
  5. IMBRUVICA [Suspect]
     Active Substance: IBRUTINIB
     Indication: CHRONIC LYMPHOCYTIC LEUKAEMIA
     Route: 048
     Dates: start: 20181017
  6. IBUPROFEN. [Concomitant]
     Active Substance: IBUPROFEN
  7. GUAIFENESIN/PSEUDOEPHEDRINE [Concomitant]
     Active Substance: GUAIFENESIN\PSEUDOEPHEDRINE HYDROCHLORIDE
  8. MELATONIN [Concomitant]
     Active Substance: MELATONIN

REACTIONS (5)
  - Asthenia [Unknown]
  - Drug ineffective [Unknown]
  - Nasopharyngitis [Unknown]
  - Hypertension [Unknown]
  - Heart rate irregular [Unknown]
